FAERS Safety Report 20818788 (Version 1)
Quarter: 2022Q2

REPORT INFORMATION
  Report Type: Spontaneous
  Country: AT (occurrence: AT)
  Receive Date: 20220512
  Receipt Date: 20220512
  Transmission Date: 20220720
  Serious: Yes (Hospitalization, Other)
  Sender: FDA-Public Use
  Company Number: AT-PFIZER INC-202200320042

PATIENT
  Age: 82 Year

DRUGS (3)
  1. ATORVASTATIN [Suspect]
     Active Substance: ATORVASTATIN
     Indication: Blood cholesterol increased
     Dosage: UNK 2X/WEEK
     Dates: start: 2020
  2. COMIRNATY [Suspect]
     Active Substance: TOZINAMERAN
     Indication: COVID-19 immunisation
     Dosage: UNK TOTAL DOSE 2, SINGLE
     Route: 030
     Dates: start: 20210416, end: 20210416
  3. CANDESARTAN [Concomitant]
     Active Substance: CANDESARTAN
     Indication: Hypertension
     Dosage: UNK 1X/DAY
     Dates: start: 2020

REACTIONS (8)
  - Diarrhoea [Recovered/Resolved]
  - Gluten sensitivity [Unknown]
  - Nausea [Not Recovered/Not Resolved]
  - Coeliac disease [Unknown]
  - Blood cholesterol decreased [Unknown]
  - Lymphadenopathy [Unknown]
  - Vomiting [Unknown]
  - Fear of death [Unknown]

NARRATIVE: CASE EVENT DATE: 20210427
